FAERS Safety Report 10252543 (Version 1)
Quarter: 2014Q2

REPORT INFORMATION
  Report Type: Spontaneous
  Country: US (occurrence: US)
  Receive Date: 20140623
  Receipt Date: 20140623
  Transmission Date: 20141212
  Serious: Yes (Other)
  Sender: FDA-Public Use
  Company Number: US-TEVA-489375USA

PATIENT
  Age: 58 Year
  Sex: Female

DRUGS (1)
  1. PARAGARD 380A [Suspect]
     Indication: CONTRACEPTION
     Route: 015

REACTIONS (3)
  - Embedded device [Not Recovered/Not Resolved]
  - Medical device complication [Not Recovered/Not Resolved]
  - Expired device used [Not Recovered/Not Resolved]
